FAERS Safety Report 17839001 (Version 1)
Quarter: 2020Q2

REPORT INFORMATION
  Report Type: Spontaneous
  Country: US (occurrence: US)
  Receive Date: 20200528
  Receipt Date: 20200528
  Transmission Date: 20200714
  Serious: Yes (Life-Threatening, Other)
  Sender: FDA-Public Use
  Company Number: None

PATIENT
  Age: 78 Year
  Sex: Male
  Weight: 138 kg

DRUGS (10)
  1. ROCURONIUM [Concomitant]
     Active Substance: ROCURONIUM BROMIDE
     Dates: start: 20200520, end: 20200520
  2. MORPHINE [Concomitant]
     Active Substance: MORPHINE
  3. BUMEX [Concomitant]
     Active Substance: BUMETANIDE
  4. FENTANYL. [Concomitant]
     Active Substance: FENTANYL
     Dates: start: 20200520
  5. INSULIN DRIP [Concomitant]
     Dates: start: 20200526, end: 20200526
  6. AZITHROMYCIN ANHYDROUS. [Concomitant]
     Active Substance: AZITHROMYCIN ANHYDROUS
     Dates: start: 20200520, end: 20200527
  7. REMDESIVIR. [Suspect]
     Active Substance: REMDESIVIR
     Indication: CORONAVIRUS INFECTION
     Route: 041
     Dates: start: 20200520, end: 20200526
  8. SODIUM BICARBONATE 50 MEQ [Concomitant]
     Dates: start: 20200525, end: 20200528
  9. PROPOFOL. [Concomitant]
     Active Substance: PROPOFOL
  10. ZOSYN [Concomitant]
     Active Substance: PIPERACILLIN SODIUM\TAZOBACTAM SODIUM
     Dates: start: 20200520, end: 20200526

REACTIONS (1)
  - Acute kidney injury [None]

NARRATIVE: CASE EVENT DATE: 20200526
